FAERS Safety Report 17111289 (Version 2)
Quarter: 2020Q1

REPORT INFORMATION
  Report Type: Spontaneous
  Country: NL (occurrence: NL)
  Receive Date: 20191204
  Receipt Date: 20200106
  Transmission Date: 20200409
  Serious: Yes (Other)
  Sender: FDA-Public Use
  Company Number: NL-MYLANLABS-2019M1118155

PATIENT
  Age: 68 Year
  Sex: Male
  Weight: 94 kg

DRUGS (12)
  1. OMEPRAZOLE. [Suspect]
     Active Substance: OMEPRAZOLE
     Indication: DYSPEPSIA
     Dosage: UNK
     Route: 048
     Dates: start: 1977
  2. HYLAN [Concomitant]
     Active Substance: CARBOXYPOLYMETHYLENE\HYALURONATE SODIUM
     Dosage: 1 DOSAGE FORM (2X P.D. HYLAN 0,15MG)
  3. PERINDOPRIL                        /00790702/ [Concomitant]
     Active Substance: PERINDOPRIL ERBUMINE
     Dosage: 2 MILLIGRAM (1TABLET PERINDOPRIL 2MG)
  4. CARBASALAATCALCIUM [Concomitant]
     Active Substance: CARBASPIRIN CALCIUM
     Dosage: 100 MILLIGRAM, QD (1 ZAKJE CARBASAL 100MG)
  5. SIMVASTATINE [Concomitant]
     Active Substance: SIMVASTATIN
     Dosage: 40 MILLIGRAM, QD (1 TABLET SIMVASTATINE 40 MG)
  6. HYDROXOCOBALAM [Concomitant]
     Dosage: 1 MILLIGRAM (1 INJECTIE HYDROXOCOBALAM 1 MG)
  7. TIMOLOL. [Concomitant]
     Active Substance: TIMOLOL
     Dosage: 1 DOSAGE FORM, QD (1X P.D. TIMOLOL 5MG)
  8. CALCI CHEW [Concomitant]
     Dosage: 500 MILLIGRAM, QD (X P.D. CALC. CHEW 500MG)
  9. FINASTERIDE. [Concomitant]
     Active Substance: FINASTERIDE
     Dosage: 5 MILLIGRAM (1 TABLET FINASTERIDE 5MG)
  10. GLICLAZIDE [Concomitant]
     Active Substance: GLICLAZIDE
     Dosage: 30 MILLIGRAM, QD (1 TABLET GLICLAZIDE 30MG)
  11. PRADAXA [Concomitant]
     Active Substance: DABIGATRAN ETEXILATE MESYLATE
     Dosage: 220 MILLIGRAM (2X CAPSULE PRADAXA 110MG)
  12. ATROVENT [Concomitant]
     Active Substance: IPRATROPIUM BROMIDE
     Dosage: 20 MICROGRAM (ZO NODIG ATROVENT 20MCG)

REACTIONS (7)
  - Vascular dementia [Unknown]
  - Vitamin B12 deficiency [Unknown]
  - Malaise [Unknown]
  - Diarrhoea [Unknown]
  - Dementia Alzheimer^s type [Unknown]
  - Pruritus [Recovered/Resolved]
  - Transient ischaemic attack [Unknown]

NARRATIVE: CASE EVENT DATE: 2004
